FAERS Safety Report 4719143-8 (Version None)
Quarter: 2005Q3

REPORT INFORMATION
  Report Type: 
  Country: None (occurrence: None)
  Receive Date: 20050720
  Receipt Date: 20050622
  Transmission Date: 20060218
  Serious: Yes (Hospitalization)
  Sender: FDA-Public Use
  Company Number: 215689

PATIENT
  Age: 61 Year
  Sex: Female

DRUGS (3)
  1. HERCEPTIN [Suspect]
     Indication: BREAST CANCER METASTATIC
     Dosage: 354 MG, Q3W, INTRAVENOUS
     Route: 042
     Dates: start: 20050426
  2. NAVELBINE [Suspect]
     Indication: BREAST CANCER METASTATIC
     Dosage: 50 MG , DAY 1+8/Q3W, INTRAVENOUS
     Route: 042
     Dates: start: 20050426
  3. PRIMPERAN ELIXIR [Concomitant]

REACTIONS (1)
  - PULMONARY EMBOLISM [None]
